FAERS Safety Report 10620167 (Version 1)
Quarter: 2014Q4

REPORT INFORMATION
  Report Type: Spontaneous
  Country: US (occurrence: US)
  Receive Date: 20141202
  Receipt Date: 20141202
  Transmission Date: 20150529
  Serious: Yes (Hospitalization)
  Sender: FDA-Public Use
  Company Number: US-ABBVIE-14P-163-1312889-00

PATIENT
  Sex: Male

DRUGS (1)
  1. ANDROGEL [Suspect]
     Active Substance: TESTOSTERONE
     Indication: BLOOD TESTOSTERONE DECREASED
     Route: 061
     Dates: start: 20120929, end: 201212

REACTIONS (11)
  - Anxiety [Unknown]
  - Economic problem [Unknown]
  - Pain [Unknown]
  - Anhedonia [Unknown]
  - Loss of employment [Unknown]
  - Impaired work ability [Unknown]
  - Fear [Unknown]
  - Injury [Unknown]
  - Cerebrovascular accident [Unknown]
  - Nervous system disorder [Unknown]
  - Social problem [Unknown]

NARRATIVE: CASE EVENT DATE: 201212
